FAERS Safety Report 8967927 (Version 1)
Quarter: 2012Q4

REPORT INFORMATION
  Report Type: 
  Country: NL (occurrence: NL)
  Receive Date: 20121217
  Receipt Date: 20121217
  Transmission Date: 20130627
  Serious: Yes (Other)
  Sender: FDA-Public Use
  Company Number: NL-BAXTER-2012BAX027204

PATIENT
  Sex: Female

DRUGS (1)
  1. KIOVIG [Suspect]
     Indication: MULTIFOCAL MOTOR NEUROPATHY
     Route: 065

REACTIONS (1)
  - Thrombosis [Unknown]
